FAERS Safety Report 4913620-2 (Version None)
Quarter: 2006Q1

REPORT INFORMATION
  Report Type: 
  Country: None (occurrence: None)
  Receive Date: 20060216
  Receipt Date: 20060206
  Transmission Date: 20060701
  Serious: Yes (Other)
  Sender: FDA-Public Use
  Company Number: US-JNJFOC-20060201816

PATIENT
  Age: 62 Year
  Sex: Female

DRUGS (5)
  1. FENTANYL [Suspect]
     Route: 062
  2. FENTANYL [Suspect]
     Route: 062
  3. FENTANYL [Suspect]
     Route: 062
  4. FENTANYL [Suspect]
     Route: 062
  5. FENTANYL [Suspect]
     Route: 062

REACTIONS (4)
  - CEREBROVASCULAR ACCIDENT [None]
  - DEPRESSED LEVEL OF CONSCIOUSNESS [None]
  - DRUG WITHDRAWAL SYNDROME [None]
  - THERAPEUTIC RESPONSE DECREASED [None]
